FAERS Safety Report 17088503 (Version 2)
Quarter: 2019Q4

REPORT INFORMATION
  Report Type: Report from Study
  Country: CA (occurrence: CA)
  Receive Date: 20191128
  Receipt Date: 20191204
  Transmission Date: 20200122
  Serious: Yes (Other)
  Sender: FDA-Public Use
  Company Number: PHHY2017CA158369

PATIENT
  Age: 39 Year
  Sex: Female

DRUGS (8)
  1. COSENTYX [Suspect]
     Active Substance: SECUKINUMAB
     Dosage: 150 MG, QMO
     Route: 058
     Dates: start: 201801
  2. NAPROXEN. [Concomitant]
     Active Substance: NAPROXEN
     Indication: PRODUCT USED FOR UNKNOWN INDICATION
     Dosage: 2 DF, QD
     Route: 065
  3. COSENTYX [Suspect]
     Active Substance: SECUKINUMAB
     Dosage: 150 MG, Q4W
     Route: 065
  4. COSENTYX [Suspect]
     Active Substance: SECUKINUMAB
     Indication: PSORIATIC ARTHROPATHY
     Dosage: 300 MG, UNK
     Route: 065
     Dates: start: 20160104
  5. COSENTYX [Suspect]
     Active Substance: SECUKINUMAB
     Dosage: 450 MG, QMO
     Route: 058
     Dates: start: 20191105
  6. COSENTYX [Suspect]
     Active Substance: SECUKINUMAB
     Dosage: 150 MG, QMO
     Route: 058
     Dates: start: 20171013
  7. COSENTYX [Suspect]
     Active Substance: SECUKINUMAB
     Dosage: 450 MG, QMO
     Route: 065
  8. CORTISONE [Concomitant]
     Active Substance: CORTISONE
     Indication: PRODUCT USED FOR UNKNOWN INDICATION
     Dosage: UNK
     Route: 065
     Dates: start: 2017

REACTIONS (13)
  - Peripheral swelling [Unknown]
  - Product prescribing error [Unknown]
  - Drug ineffective [Unknown]
  - Pneumonia [Unknown]
  - Influenza [Not Recovered/Not Resolved]
  - Nasopharyngitis [Recovering/Resolving]
  - Malaise [Recovering/Resolving]
  - Fatigue [Unknown]
  - Pain [Unknown]
  - Nasal congestion [Unknown]
  - Swelling [Unknown]
  - Arthritis [Not Recovered/Not Resolved]
  - Gastroenteritis viral [Unknown]

NARRATIVE: CASE EVENT DATE: 201801
